FAERS Safety Report 14403079 (Version 1)
Quarter: 2018Q1

REPORT INFORMATION
  Report Type: Spontaneous
  Country: CA (occurrence: CA)
  Receive Date: 20180117
  Receipt Date: 20180117
  Transmission Date: 20180509
  Serious: Yes (Other)
  Sender: FDA-Public Use
  Company Number: CA-CONCORDIA PHARMACEUTICALS INC.-GSH201801-000237

PATIENT
  Age: 60 Year
  Sex: Female

DRUGS (15)
  1. INFLIXIMAB [Suspect]
     Active Substance: INFLIXIMAB
     Route: 065
  2. SIMPONI [Suspect]
     Active Substance: GOLIMUMAB
     Route: 058
  3. PREDNISONE. [Concomitant]
     Active Substance: PREDNISONE
  4. SULFASALAZINE. [Suspect]
     Active Substance: SULFASALAZINE
     Indication: RHEUMATOID ARTHRITIS
     Route: 048
  5. DESOXIMETASONE. [Concomitant]
     Active Substance: DESOXIMETASONE
  6. ACTEMRA [Suspect]
     Active Substance: TOCILIZUMAB
     Route: 065
  7. ANAKINRA [Suspect]
     Active Substance: ANAKINRA
     Route: 065
  8. HYDROXYCHLOROQUINE TABLET [Suspect]
     Active Substance: HYDROXYCHLOROQUINE
     Indication: PRODUCT USED FOR UNKNOWN INDICATION
     Route: 065
  9. ENBREL [Suspect]
     Active Substance: ETANERCEPT
     Indication: RHEUMATOID ARTHRITIS
     Route: 058
  10. REMICADE [Suspect]
     Active Substance: INFLIXIMAB
     Route: 042
  11. METHOTREXATE. [Concomitant]
     Active Substance: METHOTREXATE
  12. HUMIRA [Suspect]
     Active Substance: ADALIMUMAB
     Route: 058
  13. ORENCIA [Suspect]
     Active Substance: ABATACEPT
     Route: 065
  14. PLAQUENIL [Suspect]
     Active Substance: HYDROXYCHLOROQUINE SULFATE
     Route: 065
  15. ACTEMRA [Suspect]
     Active Substance: TOCILIZUMAB
     Route: 065

REACTIONS (9)
  - Drug ineffective [Unknown]
  - Joint swelling [Unknown]
  - Arthrodesis [Unknown]
  - Pain [Unknown]
  - Knee arthroplasty [Unknown]
  - Shoulder arthroplasty [Unknown]
  - Treatment failure [Unknown]
  - Arthralgia [Unknown]
  - Red blood cell sedimentation rate abnormal [Unknown]
